FAERS Safety Report 18365868 (Version 1)
Quarter: 2020Q4

REPORT INFORMATION
  Report Type: Spontaneous
  Country: US (occurrence: US)
  Receive Date: 20201009
  Receipt Date: 20201009
  Transmission Date: 20210114
  Serious: No
  Sender: FDA-Public Use
  Company Number: None

PATIENT
  Age: 69 Year
  Sex: Female
  Weight: 73.49 kg

DRUGS (12)
  1. IBRANCE [Suspect]
     Active Substance: PALBOCICLIB
     Indication: BREAST CANCER
     Dosage: ?          OTHER FREQUENCY:QD FOR 21/28 DAYS;?
     Route: 048
     Dates: start: 20200629, end: 20201009
  2. KLOR-CON [Concomitant]
     Active Substance: POTASSIUM CHLORIDE
  3. METFORMIN [Concomitant]
     Active Substance: METFORMIN HYDROCHLORIDE
  4. FLUTICASONE. [Concomitant]
     Active Substance: FLUTICASONE
  5. LETROZOLE. [Concomitant]
     Active Substance: LETROZOLE
  6. ONDANSETRON [Concomitant]
     Active Substance: ONDANSETRON
  7. EXEMESTANE. [Concomitant]
     Active Substance: EXEMESTANE
  8. LISINOPRIL. [Concomitant]
     Active Substance: LISINOPRIL
  9. ATORVASTATIN [Concomitant]
     Active Substance: ATORVASTATIN
  10. BISOPROLOL-HCTZ [Concomitant]
     Active Substance: BISOPROLOL FUMARATE\HYDROCHLOROTHIAZIDE
  11. ALLOPURINOL. [Concomitant]
     Active Substance: ALLOPURINOL
  12. NYSTATIN. [Concomitant]
     Active Substance: NYSTATIN

REACTIONS (1)
  - Weight decreased [None]

NARRATIVE: CASE EVENT DATE: 20201009
